FAERS Safety Report 7601473-3 (Version None)
Quarter: 2011Q3

REPORT INFORMATION
  Report Type: 
  Country: None (occurrence: None)
  Receive Date: 20110711
  Receipt Date: 20110706
  Transmission Date: 20111222
  Serious: Yes (Hospitalization)
  Sender: FDA-Public Use
  Company Number: DE-PFIZER INC-2011151066

PATIENT
  Age: 72 Year
  Sex: Male
  Weight: 81 kg

DRUGS (1)
  1. LYRICA [Suspect]
     Indication: PROCEDURAL PAIN
     Dosage: 75 MG, 1X/DAY
     Route: 048

REACTIONS (4)
  - MUSCULAR WEAKNESS [None]
  - PAIN IN EXTREMITY [None]
  - DRUG DEPENDENCE [None]
  - MUSCLE TWITCHING [None]
